FAERS Safety Report 7136548-9 (Version None)
Quarter: 2010Q4

REPORT INFORMATION
  Report Type: 
  Country: None (occurrence: None)
  Receive Date: 20101206
  Receipt Date: 20101124
  Transmission Date: 20110411
  Serious: Yes (Other)
  Sender: FDA-Public Use
  Company Number: GB-SHIRE-ALL1-2010-04690

PATIENT
  Sex: Male
  Weight: 91.8 kg

DRUGS (3)
  1. MEZAVANT XL [Suspect]
     Indication: COLITIS ULCERATIVE
     Dosage: 4.8 G, UNKNOWN (FOUR 1.2 G TABLETS)
     Route: 048
     Dates: start: 20100601, end: 20100801
  2. MEZAVANT XL [Suspect]
     Dosage: 2.4 G, UNKNOWN (TWO 1.2 GM TABLETS)
     Route: 048
     Dates: start: 20100501, end: 20100601
  3. LANSOPRAZOLE [Concomitant]
     Indication: PRODUCT USED FOR UNKNOWN INDICATION
     Dosage: 30 MG, UNKNOWN
     Route: 048

REACTIONS (2)
  - ALVEOLITIS [None]
  - ASTHMA [None]
